FAERS Safety Report 12889706 (Version 2)
Quarter: 2016Q4

REPORT INFORMATION
  Report Type: Spontaneous
  Country: US (occurrence: US)
  Receive Date: 20161027
  Receipt Date: 20161117
  Transmission Date: 20170207
  Serious: Yes (Other)
  Sender: FDA-Public Use
  Company Number: US-BAYER-2016-205174

PATIENT
  Age: 23 Year
  Sex: Female

DRUGS (1)
  1. MIRENA [Suspect]
     Active Substance: LEVONORGESTREL
     Dosage: 20 MCG/24HR, CONT
     Route: 015
     Dates: start: 20150226, end: 20161006

REACTIONS (6)
  - Genital haemorrhage [None]
  - Abdominal pain lower [None]
  - Dysmenorrhoea [None]
  - Vaginal haemorrhage [None]
  - Pelvic pain [None]
  - Ovarian cyst [None]

NARRATIVE: CASE EVENT DATE: 20160823
